FAERS Safety Report 8365527-9 (Version None)
Quarter: 2012Q2

REPORT INFORMATION
  Report Type: 
  Country: None (occurrence: None)
  Receive Date: 20120516
  Receipt Date: 20120504
  Transmission Date: 20120825
  Serious: Yes (Hospitalization)
  Sender: FDA-Public Use
  Company Number: IT-ELI_LILLY_AND_COMPANY-IT201204000655

PATIENT
  Sex: Male

DRUGS (5)
  1. LORAZEPAM [Concomitant]
     Dosage: 4 DF, SINGLE
     Route: 048
     Dates: start: 20120130, end: 20120130
  2. ZYPREXA [Suspect]
     Indication: BORDERLINE PERSONALITY DISORDER
     Dosage: 10 MG, BID
     Route: 048
  3. ZYPREXA [Suspect]
     Dosage: 80 MG, SINGLE
     Route: 048
     Dates: start: 20120130, end: 20120130
  4. DEPAKENE [Concomitant]
     Dosage: 2000 MG, SINGLE
     Route: 048
     Dates: start: 20120130, end: 20120130
  5. DEPAKENE [Concomitant]
     Indication: BORDERLINE PERSONALITY DISORDER
     Dosage: 500 MG, QD
     Route: 048

REACTIONS (5)
  - PSYCHOMOTOR HYPERACTIVITY [None]
  - SINUS BRADYCARDIA [None]
  - INTENTIONAL OVERDOSE [None]
  - SOPOR [None]
  - HYPOTENSION [None]
